FAERS Safety Report 9135134 (Version 1)
Quarter: 2013Q1

REPORT INFORMATION
  Report Type: Spontaneous
  Country: US (occurrence: US)
  Receive Date: 20130304
  Receipt Date: 20130304
  Transmission Date: 20140127
  Serious: No
  Sender: FDA-Public Use
  Company Number: US-009507513-1303USA000870

PATIENT
  Sex: Male

DRUGS (2)
  1. A + D [Suspect]
     Indication: PAIN OF SKIN
     Dosage: UNK, UNKNOWN
     Route: 061
  2. A + D [Suspect]
     Indication: MEDICAL OBSERVATION

REACTIONS (2)
  - Drug ineffective for unapproved indication [Unknown]
  - Off label use [Unknown]
